FAERS Safety Report 7332222-4 (Version None)
Quarter: 2011Q1

REPORT INFORMATION
  Report Type: 
  Country: None (occurrence: None)
  Receive Date: 20110228
  Receipt Date: 20110228
  Transmission Date: 20110831
  Serious: No
  Sender: FDA-Public Use
  Company Number: None

PATIENT
  Age: 82 Year
  Sex: Female
  Weight: 57.1532 kg

DRUGS (5)
  1. PRADAXA [Suspect]
     Dosage: 150 MG ONE TIME DAILY
     Dates: start: 20110126, end: 20110128
  2. CARVEDELOL [Concomitant]
  3. PROTONIX [Concomitant]
  4. RYTHMOL [Concomitant]
  5. NORVASC [Concomitant]

REACTIONS (3)
  - GASTRITIS [None]
  - REGURGITATION [None]
  - ABDOMINAL PAIN UPPER [None]
